FAERS Safety Report 9381884 (Version 2)
Quarter: 2015Q2

REPORT INFORMATION
  Report Type: Spontaneous
  Country: JP (occurrence: JP)
  Receive Date: 20130703
  Receipt Date: 20150430
  Transmission Date: 20150821
  Serious: Yes (Death, Hospitalization)
  Sender: FDA-Public Use
  Company Number: PHHY2013JP068520

PATIENT
  Age: 76 Year
  Sex: Female

DRUGS (1)
  1. ETODOLAC. [Suspect]
     Active Substance: ETODOLAC
     Indication: SPINAL OSTEOARTHRITIS
     Route: 065

REACTIONS (10)
  - Blister [Unknown]
  - Hepatic function abnormal [Unknown]
  - Vulvar erosion [Unknown]
  - Cough [Unknown]
  - Histiocytosis haematophagic [Unknown]
  - Toxic epidermal necrolysis [Unknown]
  - Oropharyngeal pain [Unknown]
  - Oral mucosa erosion [Unknown]
  - Sepsis [Fatal]
  - Rash [Unknown]
